FAERS Safety Report 23041005 (Version 1)
Quarter: 2023Q4

REPORT INFORMATION
  Report Type: Spontaneous
  Country: CA (occurrence: CA)
  Receive Date: 20231006
  Receipt Date: 20231006
  Transmission Date: 20240110
  Serious: Yes (Hospitalization)
  Sender: FDA-Public Use
  Company Number: CA-BAYER-2023A139164

PATIENT
  Age: 67 Year
  Sex: Female

DRUGS (11)
  1. RIVAROXABAN [Suspect]
     Active Substance: RIVAROXABAN
     Indication: Product used for unknown indication
     Dosage: 2.5 MG, BID
     Route: 048
  2. AMLODIPINE [Concomitant]
     Active Substance: AMLODIPINE BESYLATE
  3. RHINOCORT ALLERGY [Concomitant]
     Active Substance: BUDESONIDE
  4. PERINDOPRIL [Concomitant]
     Active Substance: PERINDOPRIL
  5. METOPROLOL [Concomitant]
     Active Substance: METOPROLOL
  6. NITROGLYCERIN PATCHES (II) [Concomitant]
  7. ISOSORBIDE MONONITRATE [Concomitant]
     Active Substance: ISOSORBIDE MONONITRATE
  8. PREGABALIN [Concomitant]
     Active Substance: PREGABALIN
  9. ASPIRIN [Concomitant]
     Active Substance: ASPIRIN
  10. ATORVASTATIN [Concomitant]
     Active Substance: ATORVASTATIN
  11. GLICLAZIDE [Concomitant]
     Active Substance: GLICLAZIDE

REACTIONS (2)
  - Upper gastrointestinal haemorrhage [Recovering/Resolving]
  - Malaise [Recovering/Resolving]
